FAERS Safety Report 8877481 (Version 2)
Quarter: 2013Q2

REPORT INFORMATION
  Report Type: Spontaneous
  Country: JP (occurrence: None)
  Receive Date: 20121025
  Receipt Date: 20130411
  Transmission Date: 20140414
  Serious: Yes (Hospitalization)
  Sender: FDA-Public Use
  Company Number: 2012-003748

PATIENT
  Age: 68 Year
  Sex: Female

DRUGS (3)
  1. ACTONEL [Suspect]
     Indication: OSTEOPOROSIS
     Route: 048
     Dates: start: 2005
  2. GLUCCOCORTICOIDS [Suspect]
     Indication: RHEUMATOID ARTHRITIS
  3. PROTON PUMP INHIBITORS [Suspect]

REACTIONS (7)
  - Atypical femur fracture [None]
  - Hip fracture [None]
  - Pain in extremity [None]
  - Fall [None]
  - Muscular weakness [None]
  - Humerus fracture [None]
  - Bone disorder [None]
